FAERS Safety Report 4838450-1 (Version None)
Quarter: 2005Q4

REPORT INFORMATION
  Report Type: 
  Country: None (occurrence: None)
  Receive Date: 20051123
  Receipt Date: 20051108
  Transmission Date: 20060501
  Serious: Yes (Hospitalization, Other)
  Sender: FDA-Public Use
  Company Number: 2005-01981

PATIENT
  Age: 65 Year
  Sex: Male
  Weight: 95.2 kg

DRUGS (5)
  1. VELCADE [Suspect]
     Indication: MULTIPLE MYELOMA
     Dosage: SEE IMAGE
     Route: 042
     Dates: start: 20050412, end: 20050506
  2. VELCADE [Suspect]
     Indication: MULTIPLE MYELOMA
     Dosage: SEE IMAGE
     Route: 042
     Dates: start: 20050524, end: 20050528
  3. VELCADE [Suspect]
     Indication: MULTIPLE MYELOMA
     Dosage: SEE IMAGE
     Route: 042
     Dates: start: 20050614, end: 20050614
  4. COUMADIN [Concomitant]
  5. ANTIEMETICS AND ANTINAUSEANTS [Concomitant]

REACTIONS (15)
  - ACUTE FEBRILE NEUTROPHILIC DERMATOSIS [None]
  - CHEST PAIN [None]
  - DISEASE PROGRESSION [None]
  - DRUG ERUPTION [None]
  - DYSPHAGIA [None]
  - EATING DISORDER [None]
  - EYE INFLAMMATION [None]
  - FEBRILE NEUTROPENIA [None]
  - PANCYTOPENIA [None]
  - PHARYNGOLARYNGEAL PAIN [None]
  - PROTEIN TOTAL INCREASED [None]
  - PYODERMA GANGRENOSUM [None]
  - SINUSITIS [None]
  - TONSILLAR DISORDER [None]
  - URTICARIA [None]
